FAERS Safety Report 7132680-4 (Version None)
Quarter: 2010Q4

REPORT INFORMATION
  Report Type: 
  Country: None (occurrence: None)
  Receive Date: 20101130
  Receipt Date: 20101130
  Transmission Date: 20110411
  Serious: Yes (Death, Hospitalization)
  Sender: FDA-Public Use
  Company Number: None

PATIENT
  Age: 73 Year
  Sex: Male

DRUGS (10)
  1. REVLIMID [Suspect]
     Indication: MULTIPLE MYELOMA
     Dosage: REVLIMID 25MG DAILY X21D/28D ORALLY
     Route: 048
     Dates: start: 20081001, end: 20090801
  2. REVLIMID [Suspect]
     Indication: MULTIPLE MYELOMA
     Dosage: REVLIMID 25MG DAILY X21D/28D ORALLY
     Route: 048
     Dates: start: 20091201, end: 20100101
  3. WARFARIN SODIUM [Concomitant]
  4. DEXAMETHASONE [Concomitant]
  5. NOVOLIN N + R [Concomitant]
  6. HYDROCHLOROTHIAZIDE [Concomitant]
  7. VICODIN [Concomitant]
  8. GABAPENTIN [Concomitant]
  9. LEVOTHROID [Concomitant]
  10. ACTOS [Concomitant]

REACTIONS (4)
  - BLOOD PRESSURE DECREASED [None]
  - FATIGUE [None]
  - HEPATIC NEOPLASM MALIGNANT [None]
  - QUALITY OF LIFE DECREASED [None]
